FAERS Safety Report 25081985 (Version 1)
Quarter: 2025Q1

REPORT INFORMATION
  Report Type: Spontaneous
  Country: JP (occurrence: JP)
  Receive Date: 20250317
  Receipt Date: 20250317
  Transmission Date: 20250409
  Serious: Yes (Hospitalization)
  Sender: ASTELLAS
  Company Number: JP-ASTELLAS-2025-AER-013554

PATIENT
  Age: 78 Year
  Sex: Female
  Weight: 65 kg

DRUGS (5)
  1. TACROLIMUS [Suspect]
     Active Substance: TACROLIMUS
     Indication: Systemic lupus erythematosus
     Route: 065
  2. TACROLIMUS [Suspect]
     Active Substance: TACROLIMUS
     Route: 065
  3. PREDNISOLONE [Concomitant]
     Active Substance: PREDNISOLONE
     Indication: Systemic lupus erythematosus
     Route: 048
  4. WARFARIN [Concomitant]
     Active Substance: WARFARIN
     Indication: Deep vein thrombosis
     Route: 048
  5. CILOSTAZOL [Concomitant]
     Active Substance: CILOSTAZOL
     Indication: Deep vein thrombosis
     Route: 048

REACTIONS (2)
  - Diverticular perforation [Recovering/Resolving]
  - Mesenteric abscess [Recovering/Resolving]
